FAERS Safety Report 10250128 (Version 2)
Quarter: 2014Q3

REPORT INFORMATION
  Report Type: Spontaneous
  Country: US (occurrence: US)
  Receive Date: 20140620
  Receipt Date: 20140915
  Transmission Date: 20150326
  Serious: No
  Sender: FDA-Public Use
  Company Number: US-BRISTOL-MYERS SQUIBB COMPANY-20677985

PATIENT
  Age: 72 Year
  Sex: Male
  Weight: 80.72 kg

DRUGS (7)
  1. ALPRAZOLAM. [Interacting]
     Active Substance: ALPRAZOLAM
  2. ELIQUIS [Suspect]
     Active Substance: APIXABAN
     Indication: ATRIAL FIBRILLATION
     Dosage: TABS
     Route: 048
     Dates: start: 2014
  3. LIPITOR [Concomitant]
     Active Substance: ATORVASTATIN CALCIUM
  4. FLOMAX [Concomitant]
     Active Substance: TAMSULOSIN HYDROCHLORIDE
  5. LISINOPRIL. [Concomitant]
     Active Substance: LISINOPRIL
  6. CLONAZEPAM. [Interacting]
     Active Substance: CLONAZEPAM
  7. AVODART [Concomitant]
     Active Substance: DUTASTERIDE

REACTIONS (3)
  - Cystitis [Unknown]
  - Drug interaction [Unknown]
  - Rash [Unknown]
